FAERS Safety Report 8791208 (Version 1)
Quarter: 2012Q4

REPORT INFORMATION
  Report Type: Spontaneous
  Country: US (occurrence: None)
  Receive Date: 20120913
  Receipt Date: 20120913
  Transmission Date: 20130627
  Serious: Yes (Hospitalization, Other)
  Sender: FDA-Public Use
  Company Number: None

PATIENT
  Age: 82 Year
  Sex: Female
  Weight: 63.5 kg

DRUGS (1)
  1. MACRO 100 - SANDOZ [Suspect]
     Indication: UTI
     Dates: start: 20120106

REACTIONS (6)
  - Abdominal distension [None]
  - Pain [None]
  - Muscle spasms [None]
  - Diarrhoea [None]
  - Haemorrhoidal haemorrhage [None]
  - No therapeutic response [None]
